FAERS Safety Report 13619616 (Version 2)
Quarter: 2017Q4

REPORT INFORMATION
  Report Type: Report from Study
  Country: US (occurrence: US)
  Receive Date: 20170606
  Receipt Date: 20171103
  Transmission Date: 20180320
  Serious: No
  Sender: FDA-Public Use
  Company Number: US-AMGEN-USASL2017059181

PATIENT
  Age: 60 Year
  Sex: Female
  Weight: 68.93 kg

DRUGS (4)
  1. PROCRIT [Suspect]
     Active Substance: ERYTHROPOIETIN
     Indication: PRODUCT USED FOR UNKNOWN INDICATION
     Dosage: UNK, QWK
     Route: 065
  2. ORENCIA [Concomitant]
     Active Substance: ABATACEPT
     Indication: RHEUMATOID ARTHRITIS
     Dosage: 125 MG/ML, UNK
  3. ACTONEL [Concomitant]
     Active Substance: RISEDRONATE SODIUM
     Indication: OSTEOPOROSIS
     Dosage: 35 MG, UNK
  4. SYNTHROID [Concomitant]
     Active Substance: LEVOTHYROXINE SODIUM
     Indication: HYPOTHYROIDISM
     Dosage: 88 MUG, UNK

REACTIONS (6)
  - Blood pressure abnormal [Unknown]
  - Hypertrophic osteoarthropathy [Unknown]
  - Cardiac murmur [Unknown]
  - White blood cell count abnormal [Unknown]
  - Pallor [Unknown]
  - Weight increased [Unknown]

NARRATIVE: CASE EVENT DATE: 20170125
